FAERS Safety Report 24839944 (Version 2)
Quarter: 2025Q3

REPORT INFORMATION
  Report Type: Spontaneous
  Country: EU (occurrence: EU)
  Receive Date: 20250114
  Receipt Date: 20250714
  Transmission Date: 20251021
  Serious: Yes (Death)
  Sender: DEXCEL LTD.
  Company Number: None

PATIENT
  Age: 35 Year
  Sex: Female
  Weight: 74 kg

DRUGS (1)
  1. CHLORHEXIDINE GLUCONATE [Suspect]
     Active Substance: CHLORHEXIDINE GLUCONATE
     Indication: Spinal anaesthesia
     Route: 037
     Dates: start: 20241002, end: 20241002

REACTIONS (5)
  - Myelitis [Fatal]
  - Arachnoiditis [Fatal]
  - Encephalitis toxic [Fatal]
  - Cytotoxic lesions of corpus callosum [Fatal]
  - Wrong product administered [Fatal]

NARRATIVE: CASE EVENT DATE: 20241002
